FAERS Safety Report 11812492 (Version 6)
Quarter: 2016Q1

REPORT INFORMATION
  Report Type: Spontaneous
  Country: US (occurrence: US)
  Receive Date: 20151208
  Receipt Date: 20160202
  Transmission Date: 20160525
  Serious: Yes (Hospitalization, Other)
  Sender: FDA-Public Use
  Company Number: US-ALEXION-A201504734

PATIENT
  Age: 0 Year
  Sex: Female

DRUGS (5)
  1. CHOLECALCIFEROL [Concomitant]
     Active Substance: CHOLECALCIFEROL
     Indication: VITAMIN SUPPLEMENTATION
     Dosage: 8000 IU, QD
     Route: 065
     Dates: start: 2015
  2. ACTIGALL [Concomitant]
     Active Substance: URSODIOL
     Dosage: UNK
     Route: 065
     Dates: start: 20151101
  3. STRENSIQ [Suspect]
     Active Substance: ASFOTASE ALFA
     Dosage: 8 MG, TIW
     Route: 042
     Dates: start: 20151201
  4. ACTIGALL [Concomitant]
     Active Substance: URSODIOL
     Indication: PRODUCT USED FOR UNKNOWN INDICATION
     Dosage: UNK
     Route: 065
     Dates: start: 201508
  5. STRENSIQ [Suspect]
     Active Substance: ASFOTASE ALFA
     Indication: HYPOPHOSPHATASIA
     Dosage: 2 MG/KG, UNK
     Route: 058
     Dates: start: 20150627, end: 20151125

REACTIONS (17)
  - Parenteral nutrition associated liver disease [Recovered/Resolved]
  - Alpha 1 foetoprotein increased [Recovering/Resolving]
  - Sickle cell anaemia [Unknown]
  - Hyperbilirubinaemia [Recovered/Resolved]
  - Alanine aminotransferase increased [Recovering/Resolving]
  - Blood alkaline phosphatase increased [Recovering/Resolving]
  - Dyspepsia [Unknown]
  - Hepatitis cholestatic [Recovered/Resolved]
  - Blood bilirubin increased [Recovering/Resolving]
  - Weight gain poor [Not Recovered/Not Resolved]
  - Irritability [Not Recovered/Not Resolved]
  - Hepatic fibrosis [Recovering/Resolving]
  - Aspartate aminotransferase increased [Recovering/Resolving]
  - Respiratory tract infection [Unknown]
  - Drug withdrawal syndrome [Not Recovered/Not Resolved]
  - Faeces discoloured [Recovered/Resolved]
  - Drug ineffective [Unknown]

NARRATIVE: CASE EVENT DATE: 2015
